FAERS Safety Report 21776027 (Version 1)
Quarter: 2022Q4

REPORT INFORMATION
  Report Type: Report from Study
  Country: US (occurrence: US)
  Receive Date: 20221226
  Receipt Date: 20221226
  Transmission Date: 20230113
  Serious: Yes (Hospitalization, Other)
  Sender: FDA-Public Use
  Company Number: US-BAUSCH-BL-2021-031372

PATIENT
  Age: 69 Year
  Sex: Female

DRUGS (17)
  1. XIFAXAN [Suspect]
     Active Substance: RIFAXIMIN
     Indication: Hepatic encephalopathy
     Dosage: SAMPLES GIVEN
     Route: 048
     Dates: start: 201903
  2. FLUTICASONE PROPIONATE\SALMETEROL XINAFOATE [Concomitant]
     Active Substance: FLUTICASONE PROPIONATE\SALMETEROL XINAFOATE
     Indication: Product used for unknown indication
     Dosage: 113-14 MCG/ACTUATION INHALATION AEROSOL POWDER, BREATH ACTIVATED (AT THE SAME TIMES EACH DAY)
     Route: 055
  3. OMEPRAZOLE [Concomitant]
     Active Substance: OMEPRAZOLE
     Indication: Gastrooesophageal reflux disease
     Dosage: CAPSULE, DELAYED RELEASE (ENTERIC COATED) FOR 1 MONTH
     Route: 048
  4. CYCLOBENZAPRINE [Concomitant]
     Active Substance: CYCLOBENZAPRINE
     Indication: Product used for unknown indication
     Dosage: AS NEEDED
     Route: 048
  5. TRAMADOL [Concomitant]
     Active Substance: TRAMADOL
     Indication: Product used for unknown indication
     Route: 048
  6. SIMVASTATIN [Concomitant]
     Active Substance: SIMVASTATIN
     Indication: Product used for unknown indication
     Dosage: AT BEDTIME
     Route: 048
  7. LEVOTHYROXINE SODIUM [Concomitant]
     Active Substance: LEVOTHYROXINE SODIUM
     Indication: Product used for unknown indication
     Dosage: AT BEDTIME
     Route: 048
  8. MONTELUKAST [Concomitant]
     Active Substance: MONTELUKAST SODIUM
     Indication: Product used for unknown indication
     Route: 048
  9. PROPRANOLOL [Concomitant]
     Active Substance: PROPRANOLOL HYDROCHLORIDE
     Indication: Product used for unknown indication
     Dosage: HOLD FOR HR LESS THAN 50 AND B/P LESS THAN 100/70
     Route: 048
  10. ONDANSETRON HCL [Concomitant]
     Active Substance: ONDANSETRON HYDROCHLORIDE
     Indication: Product used for unknown indication
     Dosage: PRN
     Route: 048
  11. LACTULOSE [Concomitant]
     Active Substance: LACTULOSE
     Indication: Hepatic encephalopathy
     Dosage: 20 GRAM/30 ML
     Route: 048
  12. FUROSEMIDE [Concomitant]
     Active Substance: FUROSEMIDE
     Indication: Oedema peripheral
     Dosage: 1 TABLET BY MOUTH DAILY
     Route: 048
  13. SPIRONOLACTONE [Concomitant]
     Active Substance: SPIRONOLACTONE
     Indication: Oedema peripheral
     Dosage: 1 TABLET BY MOUTH 2 TIMES PER DAY
     Route: 048
  14. TWINRIX [Concomitant]
     Active Substance: HEPATITIS A VIRUS STRAIN HM175 ANTIGEN (FORMALDEHYDE INACTIVATED)\HEPATITIS B VIRUS SUBTYPE ADW2 HBS
     Indication: Hepatitis immunisation
     Dosage: (PF) 720 ELISA UNIT - 20 MCG/ML GIVEN AS DIRECTED, SYRINGE
     Route: 030
  15. DONEPEZIL [Concomitant]
     Active Substance: DONEPEZIL
     Indication: Product used for unknown indication
     Dosage: 1 TABLET BY MOUTH, IN THE EVENING
     Route: 048
  16. MEMANTINE [Concomitant]
     Active Substance: MEMANTINE
     Indication: Product used for unknown indication
  17. HYDROXYZINE HYDROCHLORIDE [Concomitant]
     Active Substance: HYDROXYZINE HYDROCHLORIDE
     Indication: Product used for unknown indication
     Dosage: 1 TABLET BY MOUTH, EVERY NIGHT AT BEDTIME
     Route: 048

REACTIONS (15)
  - Portal hypertension [Unknown]
  - Hepatic encephalopathy [Unknown]
  - Condition aggravated [Unknown]
  - Fall [Unknown]
  - Anaemia [Unknown]
  - Vomiting [Unknown]
  - Back pain [Unknown]
  - Abdominal distension [Unknown]
  - Nausea [Recovering/Resolving]
  - Headache [Unknown]
  - Weight decreased [Unknown]
  - Vertigo [Unknown]
  - Dizziness [Recovered/Resolved]
  - Hypokalaemia [Unknown]
  - Blood magnesium increased [Unknown]

NARRATIVE: CASE EVENT DATE: 20220101
